FAERS Safety Report 6763235-9 (Version None)
Quarter: 2010Q2

REPORT INFORMATION
  Report Type: 
  Country: None (occurrence: None)
  Receive Date: 20100610
  Receipt Date: 20100527
  Transmission Date: 20101027
  Serious: Yes (Other)
  Sender: FDA-Public Use
  Company Number: US-ASTRAZENECA-2006UW22050

PATIENT
  Age: 20240 Day
  Sex: Male
  Weight: 114.8 kg

DRUGS (8)
  1. SEROQUEL [Suspect]
     Indication: DEPRESSION
     Route: 048
     Dates: start: 19991121
  2. SEROQUEL [Suspect]
     Dosage: 50MG-150MG
     Route: 048
     Dates: start: 20021029
  3. STELAZINE [Concomitant]
     Route: 048
  4. WELLBUTRIN XL/ SR [Concomitant]
     Dosage: 200MG-300MG
     Dates: start: 20021205
  5. TOPAMAX [Concomitant]
     Dosage: 100MG-300MG
     Dates: start: 20030227
  6. VIAGRA [Concomitant]
     Dates: start: 20021205
  7. CLONAZEPAM [Concomitant]
     Indication: ANXIETY
  8. LORAZEPAM [Concomitant]
     Route: 048
     Dates: start: 19991101

REACTIONS (3)
  - DIABETES MELLITUS [None]
  - DIABETIC NEUROPATHY [None]
  - TYPE 2 DIABETES MELLITUS [None]
